FAERS Safety Report 20751629 (Version 1)
Quarter: 2022Q2

REPORT INFORMATION
  Report Type: Spontaneous
  Country: US (occurrence: US)
  Receive Date: 20220426
  Receipt Date: 20220426
  Transmission Date: 20220721
  Serious: No
  Sender: FDA-Public Use
  Company Number: US-PFIZER INC-2021764093

PATIENT
  Age: 30 Year
  Sex: Male
  Weight: 86.18 kg

DRUGS (1)
  1. VIAGRA [Suspect]
     Active Substance: SILDENAFIL CITRATE
     Indication: Erection increased
     Dosage: 100 MG, 1X/DAY
     Route: 048
     Dates: start: 20210623

REACTIONS (4)
  - Dysuria [Unknown]
  - Erection increased [Unknown]
  - Anorgasmia [Unknown]
  - Penis disorder [Unknown]

NARRATIVE: CASE EVENT DATE: 20210623
